FAERS Safety Report 5440815-4 (Version None)
Quarter: 2007Q3

REPORT INFORMATION
  Report Type: 
  Country: None (occurrence: None)
  Receive Date: 20070831
  Receipt Date: 20070828
  Transmission Date: 20080115
  Serious: Yes (Hospitalization, Other)
  Sender: FDA-Public Use
  Company Number: US-MERCK-0708USA05148

PATIENT
  Age: 48 Year
  Sex: Female
  Weight: 173 kg

DRUGS (25)
  1. JANUVIA [Suspect]
     Indication: TYPE 2 DIABETES MELLITUS
     Route: 048
     Dates: start: 20070523, end: 20070601
  2. FUROSEMIDE [Concomitant]
     Route: 065
  3. ASPIRIN [Concomitant]
     Route: 065
  4. GABAPENTIN [Concomitant]
     Route: 065
  5. ISOSORBIDE [Concomitant]
     Route: 065
  6. BENICAR [Concomitant]
     Route: 065
  7. VERAPAMIL [Concomitant]
     Route: 065
  8. ALLOPURINOL [Concomitant]
     Route: 065
  9. LORATADINE [Concomitant]
     Route: 065
  10. POTASSIUM CHLORIDE [Concomitant]
     Route: 065
  11. CALCIUM (UNSPECIFIED) [Concomitant]
     Route: 065
  12. CRESTOR [Concomitant]
     Route: 065
  13. PRANDIN [Concomitant]
     Route: 065
  14. IBUPROFEN [Concomitant]
     Route: 065
  15. METOLAZONE [Concomitant]
     Route: 065
  16. NOVOLOG [Concomitant]
     Route: 065
  17. LANTUS [Concomitant]
     Route: 065
  18. LANTUS [Concomitant]
     Route: 065
  19. LANTUS [Concomitant]
     Route: 065
  20. SINGULAIR [Concomitant]
     Route: 048
  21. XOPENEX [Concomitant]
     Route: 065
  22. LEVEMIR [Concomitant]
     Route: 065
  23. APIDRA [Concomitant]
     Route: 065
  24. ADVAIR DISKUS 100/50 [Concomitant]
     Route: 065
  25. CYMBALTA [Concomitant]
     Route: 065

REACTIONS (3)
  - ASTHMA [None]
  - RESPIRATORY DISTRESS [None]
  - SINUS CONGESTION [None]
